FAERS Safety Report 15050372 (Version 1)
Quarter: 2018Q2

REPORT INFORMATION
  Report Type: Spontaneous
  Country: FR (occurrence: FR)
  Receive Date: 20180622
  Receipt Date: 20180622
  Transmission Date: 20180711
  Serious: Yes (Other)
  Sender: FDA-Public Use
  Company Number: PHHY2018FR027621

PATIENT
  Age: 48 Year
  Sex: Male

DRUGS (1)
  1. IBUPROFEN. [Suspect]
     Active Substance: IBUPROFEN
     Indication: PULPITIS DENTAL
     Dosage: UNK
     Route: 048

REACTIONS (1)
  - Fasciitis [Recovered/Resolved]

NARRATIVE: CASE EVENT DATE: 20180309
